FAERS Safety Report 8233830-9 (Version None)
Quarter: 2012Q1

REPORT INFORMATION
  Report Type: 
  Country: None (occurrence: None)
  Receive Date: 20120321
  Receipt Date: 20120319
  Transmission Date: 20120608
  Serious: Yes (Other)
  Sender: FDA-Public Use
  Company Number: 2012AP000679

PATIENT
  Age: 18 Year
  Sex: Male

DRUGS (2)
  1. FLUOXETINE [Suspect]
     Indication: PRODUCT USED FOR UNKNOWN INDICATION
     Dosage: 10 MG
  2. CANNABIS (CANNABIS SATIVA) [Suspect]
     Indication: PRODUCT USED FOR UNKNOWN INDICATION

REACTIONS (16)
  - DEPRESSION [None]
  - DECREASED APPETITE [None]
  - LOSS OF LIBIDO [None]
  - SUICIDE ATTEMPT [None]
  - CRYING [None]
  - FEELING ABNORMAL [None]
  - INSOMNIA [None]
  - DRUG LEVEL INCREASED [None]
  - LACERATION [None]
  - AKATHISIA [None]
  - AGGRESSION [None]
  - RESTLESSNESS [None]
  - PARANOIA [None]
  - HOMICIDE [None]
  - DRUG INTERACTION [None]
  - ROAD TRAFFIC ACCIDENT [None]
